FAERS Safety Report 5795753-4 (Version None)
Quarter: 2008Q3

REPORT INFORMATION
  Report Type: 
  Country: None (occurrence: None)
  Receive Date: 20080701
  Receipt Date: 20080626
  Transmission Date: 20090109
  Serious: Yes (Hospitalization)
  Sender: FDA-Public Use
  Company Number: US-RANBAXY-2008RR-15804

PATIENT

DRUGS (4)
  1. CLINDAMYCIN HYDROCHLORIDE [Suspect]
     Indication: SKIN LESION
     Dosage: 300 MG, BID
  2. CLINDAMYCIN HYDROCHLORIDE [Suspect]
     Dosage: 150 MG, UNK
  3. RISPERIDONE TABLET [Suspect]
     Indication: AUTISM
     Dosage: 5.5 MG, QD
  4. RISPERIDONE TABLET [Suspect]
     Dosage: 4 MG, QD

REACTIONS (2)
  - DRUG INTERACTION [None]
  - MOVEMENT DISORDER [None]
